FAERS Safety Report 9928461 (Version 1)
Quarter: 2014Q1

REPORT INFORMATION
  Report Type: Report from Study
  Country: US (occurrence: US)
  Receive Date: 20140227
  Receipt Date: 20140227
  Transmission Date: 20141002
  Serious: Yes (Other)
  Sender: FDA-Public Use
  Company Number: US-ASTELLAS-2014US002012

PATIENT
  Age: 65 Year
  Sex: Female

DRUGS (2)
  1. ERLOTINIB TABLET [Suspect]
     Indication: LUNG NEOPLASM MALIGNANT
     Dosage: 150 MG, UID/QD
     Route: 048
     Dates: start: 201401
  2. MORPHINE SULFATE [Concomitant]
     Indication: PAIN
     Dosage: 60 MG, Q12 HOURS
     Route: 048

REACTIONS (11)
  - Aphagia [Not Recovered/Not Resolved]
  - Glossitis [Not Recovered/Not Resolved]
  - Tongue discolouration [Not Recovered/Not Resolved]
  - Pneumonia pseudomonal [Unknown]
  - Retching [Not Recovered/Not Resolved]
  - Nervousness [Unknown]
  - Tremor [Unknown]
  - Erythema [Not Recovered/Not Resolved]
  - Vomiting [Not Recovered/Not Resolved]
  - Asthenia [Unknown]
  - Sputum discoloured [Unknown]
